FAERS Safety Report 17809386 (Version 2)
Quarter: 2020Q3

REPORT INFORMATION
  Report Type: Report from Study
  Country: US (occurrence: US)
  Receive Date: 20200520
  Receipt Date: 20200701
  Transmission Date: 20201102
  Serious: Yes (Hospitalization)
  Sender: FDA-Public Use
  Company Number: US-ACTELION-A-NJ2020-204148

PATIENT
  Age: 61 Year
  Sex: Male
  Weight: 96.6 kg

DRUGS (4)
  1. NIFEDIPINE. [Concomitant]
     Active Substance: NIFEDIPINE
  2. ADEMPAS [Concomitant]
     Active Substance: RIOCIGUAT
  3. ELIQUIS [Concomitant]
     Active Substance: APIXABAN
  4. OPSUMIT [Suspect]
     Active Substance: MACITENTAN
     Indication: PULMONARY ARTERIAL HYPERTENSION
     Dosage: 10 MG, QD
     Route: 048
     Dates: start: 202003

REACTIONS (17)
  - Peripheral swelling [Unknown]
  - Swelling [Unknown]
  - Flushing [Unknown]
  - Fall [Unknown]
  - Loss of consciousness [Unknown]
  - Adverse reaction [Unknown]
  - Cervical vertebral fracture [Unknown]
  - Weight increased [Unknown]
  - Fatigue [Unknown]
  - Nasal congestion [Unknown]
  - Dyspnoea [Unknown]
  - Elephantiasis [Unknown]
  - Oedema [Unknown]
  - Pyrexia [Unknown]
  - Rhinorrhoea [Unknown]
  - Asthenia [Unknown]
  - Chills [Unknown]

NARRATIVE: CASE EVENT DATE: 202003
